FAERS Safety Report 21004699 (Version 5)
Quarter: 2024Q1

REPORT INFORMATION
  Report Type: Spontaneous
  Country: US (occurrence: US)
  Receive Date: 20220624
  Receipt Date: 20240205
  Transmission Date: 20240409
  Serious: Yes (Hospitalization)
  Sender: FDA-Public Use
  Company Number: US-PFIZER INC-PV202200007032

PATIENT
  Age: 56 Year
  Sex: Male

DRUGS (1)
  1. INLYTA [Suspect]
     Active Substance: AXITINIB
     Dosage: UNK

REACTIONS (10)
  - Bacterial infection [Unknown]
  - Localised infection [Unknown]
  - Pain [Unknown]
  - Injury [Unknown]
  - Fatigue [Unknown]
  - Gingival pain [Unknown]
  - Dysuria [Not Recovered/Not Resolved]
  - Dry skin [Unknown]
  - Wound [Unknown]
  - Product dose omission issue [Unknown]

NARRATIVE: CASE EVENT DATE: 20220101
